FAERS Safety Report 10182551 (Version 1)
Quarter: 2014Q2

REPORT INFORMATION
  Report Type: Spontaneous
  Country: US (occurrence: None)
  Receive Date: 20140519
  Receipt Date: 20140519
  Transmission Date: 20141212
  Serious: Yes (Other)
  Sender: FDA-Public Use
  Company Number: None

PATIENT
  Age: 2 Month
  Sex: Male
  Weight: 34.02 kg

DRUGS (3)
  1. CORTISONE [Suspect]
     Indication: POSTPARTUM DISORDER
     Dosage: DO NOT KNOW, PRN/AS NEEDED, TOPICAL
     Route: 061
  2. CORTISONE [Suspect]
     Indication: RASH
     Dosage: DO NOT KNOW, PRN/AS NEEDED, TOPICAL
     Route: 061
  3. CORTISONE [Suspect]
     Indication: RASH
     Dosage: DO NOT KNOW, PRN/AS NEEDED, TOPICAL
     Route: 061

REACTIONS (5)
  - Exfoliative rash [None]
  - No therapeutic response [None]
  - Psoriasis [None]
  - Onychomadesis [None]
  - Infection [None]
